FAERS Safety Report 10052049 (Version 1)
Quarter: 2014Q2

REPORT INFORMATION
  Report Type: Spontaneous
  Country: IT (occurrence: IT)
  Receive Date: 20140402
  Receipt Date: 20140402
  Transmission Date: 20141212
  Serious: Yes (Hospitalization)
  Sender: FDA-Public Use
  Company Number: IT-RANBAXY-2014RR-79495

PATIENT
  Age: 48 Year
  Sex: Female

DRUGS (2)
  1. AMOXICILLIN [Suspect]
     Indication: PRODUCT USED FOR UNKNOWN INDICATION
     Dosage: 1 DF, UNK
     Route: 048
     Dates: start: 20140313, end: 20140313
  2. SUPRADYN - (BYERN S.P.A) [Suspect]
     Indication: PRODUCT USED FOR UNKNOWN INDICATION
     Dosage: 1 DF, UNK
     Route: 048
     Dates: start: 20140313, end: 20140313

REACTIONS (2)
  - Face oedema [Recovering/Resolving]
  - Erythema [Recovering/Resolving]
